FAERS Safety Report 9763787 (Version 1)
Quarter: 2013Q4

REPORT INFORMATION
  Report Type: Spontaneous
  Country: US (occurrence: US)
  Receive Date: 20131216
  Receipt Date: 20131216
  Transmission Date: 20140711
  Serious: No
  Sender: FDA-Public Use
  Company Number: US-BIOGENIDEC-2013BI110800

PATIENT
  Sex: Female

DRUGS (5)
  1. TECFIDERA [Suspect]
     Indication: MULTIPLE SCLEROSIS
     Route: 048
     Dates: start: 20130925
  2. PAXIL [Concomitant]
  3. NUVIGIL [Concomitant]
  4. CALCIUM [Concomitant]
  5. AMPYRA ER [Concomitant]

REACTIONS (1)
  - Adverse event [Unknown]
